FAERS Safety Report 9693213 (Version 3)
Quarter: 2013Q4

REPORT INFORMATION
  Report Type: Spontaneous
  Country: JP (occurrence: JP)
  Receive Date: 20131118
  Receipt Date: 20131212
  Transmission Date: 20140711
  Serious: Yes (Other)
  Sender: FDA-Public Use
  Company Number: JP-B.I. PHARMACEUTICALS,INC./RIDGEFIELD-2013-BI-37813GD

PATIENT
  Age: 5 Decade
  Sex: Female

DRUGS (2)
  1. PRADAXA [Suspect]
     Indication: PULMONARY HYPERTENSION
     Route: 048
     Dates: start: 2011
  2. AMBRISENTAN [Suspect]
     Indication: PULMONARY HYPERTENSION
     Route: 065
     Dates: start: 2011

REACTIONS (4)
  - Pulmonary oedema [Unknown]
  - Pulmonary haemorrhage [Unknown]
  - Post procedural haemorrhage [Unknown]
  - Haemoptysis [Unknown]
